FAERS Safety Report 6237590-2 (Version None)
Quarter: 2009Q2

REPORT INFORMATION
  Report Type: 
  Country: None (occurrence: None)
  Receive Date: 20090617
  Receipt Date: 20090610
  Transmission Date: 20091009
  Serious: Yes (Other)
  Sender: FDA-Public Use
  Company Number: IPS_01678_2009

PATIENT
  Age: 59 Year
  Sex: Female

DRUGS (2)
  1. APOKYN [Suspect]
     Indication: PARKINSON'S DISEASE
     Dosage: 0.4 ML, SUBCUTANEOUS
     Route: 058
     Dates: start: 20090603, end: 20090609
  2. TIGAN [Suspect]
     Indication: NAUSEA
     Dosage: 1 DF TID, ORAL
     Route: 048

REACTIONS (2)
  - NAUSEA [None]
  - SWELLING FACE [None]
